FAERS Safety Report 6151356-3 (Version None)
Quarter: 2009Q2

REPORT INFORMATION
  Report Type: 
  Country: None (occurrence: None)
  Receive Date: 20090410
  Receipt Date: 20090406
  Transmission Date: 20091009
  Serious: Yes (Hospitalization)
  Sender: FDA-Public Use
  Company Number: US-JNJFOC-20090305650

PATIENT
  Sex: Male
  Weight: 52.9 kg

DRUGS (1)
  1. RISPERDAL [Suspect]
     Indication: SCHIZOPHRENIA
     Dosage: 2MG AM AND 2MG PM DAILY

REACTIONS (2)
  - PNEUMONIA [None]
  - PYREXIA [None]
